FAERS Safety Report 20258108 (Version 2)
Quarter: 2022Q2

REPORT INFORMATION
  Report Type: Spontaneous
  Country: PT (occurrence: PT)
  Receive Date: 20211230
  Receipt Date: 20220523
  Transmission Date: 20220721
  Serious: Yes (Death)
  Sender: FDA-Public Use
  Company Number: PT-PFIZER INC-202101659248

PATIENT
  Age: 68 Year
  Sex: Female

DRUGS (9)
  1. PIPERACILLIN SODIUM\TAZOBACTAM SODIUM [Suspect]
     Active Substance: PIPERACILLIN SODIUM\TAZOBACTAM SODIUM
     Indication: Enterobacter infection
     Dosage: UNK
  2. PIPERACILLIN SODIUM\TAZOBACTAM SODIUM [Suspect]
     Active Substance: PIPERACILLIN SODIUM\TAZOBACTAM SODIUM
     Indication: Tracheobronchitis
  3. VORICONAZOLE [Suspect]
     Active Substance: VORICONAZOLE
     Indication: Aspergillus infection
     Dosage: 600 MILLIGRAM, QD (300 MG, EVERY 12 HOURS)
  4. VORICONAZOLE [Suspect]
     Active Substance: VORICONAZOLE
     Indication: Bronchopulmonary aspergillosis
  5. VORICONAZOLE [Suspect]
     Active Substance: VORICONAZOLE
     Indication: COVID-19
  6. MEROPENEM [Suspect]
     Active Substance: MEROPENEM
     Indication: Bronchopulmonary aspergillosis
     Dosage: 3 GRAM, QD (1 G, EVERY 8 HOURS)
  7. MEROPENEM [Suspect]
     Active Substance: MEROPENEM
     Indication: COVID-19
  8. LINEZOLID [Suspect]
     Active Substance: LINEZOLID
     Indication: Bronchopulmonary aspergillosis
     Dosage: 1200 MILLIGRAM, QD (600 MG, EVERY 12 HOURS)
  9. LINEZOLID [Suspect]
     Active Substance: LINEZOLID
     Indication: COVID-19

REACTIONS (3)
  - Drug ineffective for unapproved indication [Fatal]
  - Organ failure [Fatal]
  - Off label use [Fatal]
